FAERS Safety Report 26108260 (Version 1)
Quarter: 2025Q4

REPORT INFORMATION
  Report Type: Spontaneous
  Country: US (occurrence: None)
  Receive Date: 20251128
  Receipt Date: 20251128
  Transmission Date: 20260117
  Serious: Yes (Disabling, Other)
  Sender: FDA-CTU
  Company Number: None

PATIENT
  Age: 39 Year
  Sex: Female
  Weight: 70.65 kg

DRUGS (8)
  1. LEVOFLOXACIN [Suspect]
     Active Substance: LEVOFLOXACIN
     Indication: Influenza like illness
     Dosage: OTHER QUANTITY : 1 TABLET(S);?FREQUENCY : DAILY;?
     Route: 048
     Dates: start: 20250305, end: 20250306
  2. Adderall 30mg twice day [Concomitant]
  3. Cymbalta 60mg once day [Concomitant]
  4. Baclofen 20mg PRN [Concomitant]
  5. Tramadol 50mg PRN [Concomitant]
  6. Multivitamin once day [Concomitant]
  7. Allegra 180mg once day [Concomitant]
  8. Flonase 50mcg once day [Concomitant]

REACTIONS (19)
  - Autonomic nervous system imbalance [None]
  - Small fibre neuropathy [None]
  - Temperature perception test abnormal [None]
  - Burning sensation [None]
  - Pain of skin [None]
  - Bone pain [None]
  - Allodynia [None]
  - Dry mouth [None]
  - Dry eye [None]
  - Hypotension [None]
  - Tachycardia [None]
  - Syncope [None]
  - Livedo reticularis [None]
  - Myalgia [None]
  - Pain in extremity [None]
  - Pain in extremity [None]
  - Arthritis [None]
  - Cutaneous vasculitis [None]
  - Dyspnoea [None]

NARRATIVE: CASE EVENT DATE: 20250305
